FAERS Safety Report 12417333 (Version 1)
Quarter: 2016Q2

REPORT INFORMATION
  Report Type: Spontaneous
  Country: DE (occurrence: DE)
  Receive Date: 20160530
  Receipt Date: 20160530
  Transmission Date: 20160815
  Serious: Yes (Other)
  Sender: FDA-Public Use
  Company Number: DE-JNJFOC-20150700643

PATIENT
  Age: 47 Year
  Sex: Male

DRUGS (1)
  1. SIMPONI [Suspect]
     Active Substance: GOLIMUMAB
     Indication: ANKYLOSING SPONDYLITIS
     Dosage: DYRATION 5 YEARS
     Route: 058
     Dates: start: 20100511, end: 20150617

REACTIONS (1)
  - Keratitis [Not Recovered/Not Resolved]

NARRATIVE: CASE EVENT DATE: 20150421
